FAERS Safety Report 8014847-6 (Version None)
Quarter: 2011Q4

REPORT INFORMATION
  Report Type: 
  Country: None (occurrence: None)
  Receive Date: 20111229
  Receipt Date: 20111222
  Transmission Date: 20120403
  Serious: Yes (Life-Threatening, Hospitalization, Disabling)
  Sender: FDA-Public Use
  Company Number: AU-SANOFI-AVENTIS-2011SA022177

PATIENT
  Age: 67 Year
  Sex: Female
  Weight: 109 kg

DRUGS (25)
  1. FLUTICASONE FUROATE [Concomitant]
     Indication: ASTHMA
     Dosage: DOSE: 2 PUFFS
     Route: 055
  2. PANTOPRAZOLE [Concomitant]
     Route: 048
  3. POTASSIUM [Concomitant]
  4. VERAPAMIL [Concomitant]
     Indication: HYPERTENSION
     Route: 048
     Dates: end: 20110406
  5. COLECALCIFEROL [Concomitant]
     Indication: VITAMIN D
     Route: 048
  6. FOLIC ACID [Concomitant]
     Route: 048
  7. ACETAMINOPHEN [Concomitant]
     Indication: PAIN
     Route: 048
  8. ASPIRIN [Concomitant]
     Indication: ATRIAL FIBRILLATION
  9. PREDNISOLONE [Concomitant]
     Indication: RHEUMATOID ARTHRITIS
     Route: 048
  10. METOPROLOL SUCCINATE [Concomitant]
     Indication: ATRIAL FIBRILLATION
     Route: 048
     Dates: start: 20110406
  11. CAPECITABINE [Suspect]
     Route: 048
     Dates: end: 20110810
  12. SALMETEROL [Concomitant]
     Indication: ASTHMA
     Dosage: 25 MCG, DOSE: 2 PUFFS
     Route: 055
  13. OLMESARTAN MEDOXOMIL [Concomitant]
     Indication: HYPERTENSION
     Route: 048
  14. METOCLOPRAMIDE [Concomitant]
     Indication: NAUSEA
     Route: 048
  15. OXALIPLATIN [Suspect]
     Indication: RECTAL CANCER
     Dosage: ACTUAL DOSE GIVEN: 104 MG
     Route: 042
     Dates: start: 20110221, end: 20110321
  16. THERAPEUTIC RADIOPHARMACEUTICALS [Suspect]
     Indication: RECTAL CANCER
     Dosage: 28 FRACTIONS OF RADIOTHRAPY AT A DOSE OF 1.8 GY PER FRACTION
     Route: 065
     Dates: start: 20110401
  17. DICLOFENAC SODIUM [Concomitant]
     Indication: RHEUMATOID ARTHRITIS
     Route: 048
  18. FERROUS SULFATE TAB [Concomitant]
     Route: 048
  19. MAGNESIUM [Concomitant]
  20. OXALIPLATIN [Suspect]
     Route: 042
     Dates: end: 20110810
  21. THERAPEUTIC RADIOPHARMACEUTICALS [Suspect]
     Route: 065
     Dates: start: 20110221
  22. THERAPEUTIC RADIOPHARMACEUTICALS [Suspect]
     Route: 065
     Dates: end: 20110810
  23. ENOXAPARIN [Concomitant]
     Indication: ATRIAL FIBRILLATION
     Route: 058
     Dates: start: 20110626
  24. CAPECITABINE [Suspect]
     Indication: RECTAL CANCER
     Dosage: ACTUAL DOSE GIVEN: 1000 MG, 825 MG/M2 , BID D1-33
     Route: 048
     Dates: start: 20110201, end: 20110401
  25. METHOTREXATE [Concomitant]
     Indication: RHEUMATOID ARTHRITIS
     Route: 048

REACTIONS (9)
  - HYPOKALAEMIA [None]
  - PYREXIA [None]
  - DECREASED APPETITE [None]
  - FEMALE GENITAL TRACT FISTULA [None]
  - HYPOALBUMINAEMIA [None]
  - ATRIAL FIBRILLATION [None]
  - URINARY TRACT INFECTION [None]
  - FAILURE TO ANASTOMOSE [None]
  - DEHYDRATION [None]
